FAERS Safety Report 6748369-7 (Version None)
Quarter: 2010Q2

REPORT INFORMATION
  Report Type: 
  Country: None (occurrence: None)
  Receive Date: 20100601
  Receipt Date: 20100521
  Transmission Date: 20101027
  Serious: No
  Sender: FDA-Public Use
  Company Number: 2008BI010092

PATIENT
  Sex: Female

DRUGS (3)
  1. TYSABRI [Suspect]
     Indication: MULTIPLE SCLEROSIS
     Route: 042
     Dates: start: 20070726, end: 20090101
  2. TYSABRI [Suspect]
     Route: 042
     Dates: start: 20090101
  3. AMPYRA [Concomitant]
     Indication: MOBILITY DECREASED
     Dates: start: 20100501

REACTIONS (6)
  - ASTHENIA [None]
  - FATIGUE [None]
  - GAIT DISTURBANCE [None]
  - HEADACHE [None]
  - MUSCULOSKELETAL STIFFNESS [None]
  - TREMOR [None]
